FAERS Safety Report 9928798 (Version 1)
Quarter: 2014Q1

REPORT INFORMATION
  Report Type: Spontaneous
  Country: GB (occurrence: GB)
  Receive Date: 20140227
  Receipt Date: 20140227
  Transmission Date: 20141002
  Serious: Yes (Other)
  Sender: FDA-Public Use
  Company Number: GB-PFIZER INC-2014053772

PATIENT
  Age: 53 Year
  Sex: Male
  Weight: 102 kg

DRUGS (5)
  1. LYRICA [Suspect]
     Indication: BACK PAIN
     Dosage: 300 MG, UNK
     Route: 048
     Dates: start: 20140131, end: 20140202
  2. PARACETAMOL [Concomitant]
     Dosage: UNK
  3. TRAMADOL [Concomitant]
     Dosage: UNK
  4. AMLODIPINE [Concomitant]
     Dosage: UNK
  5. AMITRIPTYLINE [Concomitant]
     Dosage: UNK

REACTIONS (4)
  - Dysphemia [Not Recovered/Not Resolved]
  - Muscle spasms [Recovering/Resolving]
  - Aphasia [Recovering/Resolving]
  - Clumsiness [Recovering/Resolving]
